FAERS Safety Report 15155259 (Version 1)
Quarter: 2018Q3

REPORT INFORMATION
  Report Type: Spontaneous
  Country: US (occurrence: US)
  Receive Date: 20180620
  Receipt Date: 20180620
  Transmission Date: 20181010
  Serious: Yes (Disabling)
  Sender: FDA-Public Use
  Company Number: None

PATIENT
  Age: 55 Year
  Sex: Female
  Weight: 58.5 kg

DRUGS (2)
  1. ARMOUR THYROID [Concomitant]
     Active Substance: THYROID, PORCINE
  2. ATIVAN (GENERIC) [Suspect]
     Active Substance: LORAZEPAM
     Indication: PANIC ATTACK
     Dates: start: 20100213, end: 20111106

REACTIONS (37)
  - Dizziness [None]
  - Alopecia [None]
  - Eye pain [None]
  - Muscle tightness [None]
  - Delusional perception [None]
  - Food intolerance [None]
  - Feeding disorder [None]
  - Cognitive disorder [None]
  - Fear [None]
  - Toothache [None]
  - Decreased appetite [None]
  - Fatigue [None]
  - Muscular weakness [None]
  - Ear pain [None]
  - Nausea [None]
  - Tachycardia [None]
  - Hot flush [None]
  - Discomfort [None]
  - Weight decreased [None]
  - Exercise tolerance decreased [None]
  - Anxiety [None]
  - Agoraphobia [None]
  - Housebound [None]
  - Eructation [None]
  - Tinnitus [None]
  - Auditory disorder [None]
  - Pruritus [None]
  - Dyspnoea [None]
  - Rash macular [None]
  - Abdominal distension [None]
  - Impaired work ability [None]
  - Flat affect [None]
  - Pain in jaw [None]
  - Anal incontinence [None]
  - Diarrhoea [None]
  - Dry skin [None]
  - Chills [None]

NARRATIVE: CASE EVENT DATE: 20111107
